FAERS Safety Report 24118888 (Version 2)
Quarter: 2025Q1

REPORT INFORMATION
  Report Type: Report from Study
  Country: US (occurrence: US)
  Receive Date: 20240722
  Receipt Date: 20250320
  Transmission Date: 20250409
  Serious: Yes (Other)
  Sender: MYLAN
  Company Number: US-MYLANLABS-2024M1017844

PATIENT
  Sex: Female

DRUGS (12)
  1. ATORVASTATIN CALCIUM [Interacting]
     Active Substance: ATORVASTATIN CALCIUM
     Indication: Product used for unknown indication
  2. ATORVASTATIN CALCIUM [Interacting]
     Active Substance: ATORVASTATIN CALCIUM
     Route: 065
  3. ATORVASTATIN CALCIUM [Interacting]
     Active Substance: ATORVASTATIN CALCIUM
     Route: 065
  4. ATORVASTATIN CALCIUM [Interacting]
     Active Substance: ATORVASTATIN CALCIUM
  5. VYNDAMAX [Interacting]
     Active Substance: TAFAMIDIS
     Indication: Product used for unknown indication
  6. VYNDAMAX [Interacting]
     Active Substance: TAFAMIDIS
     Route: 065
  7. VYNDAMAX [Interacting]
     Active Substance: TAFAMIDIS
     Route: 065
  8. VYNDAMAX [Interacting]
     Active Substance: TAFAMIDIS
  9. TAFAMIDIS MEGLUMINE [Suspect]
     Active Substance: TAFAMIDIS MEGLUMINE
     Indication: Product used for unknown indication
  10. TAFAMIDIS MEGLUMINE [Suspect]
     Active Substance: TAFAMIDIS MEGLUMINE
     Route: 065
  11. TAFAMIDIS MEGLUMINE [Suspect]
     Active Substance: TAFAMIDIS MEGLUMINE
     Route: 065
  12. TAFAMIDIS MEGLUMINE [Suspect]
     Active Substance: TAFAMIDIS MEGLUMINE

REACTIONS (9)
  - Neuropathy peripheral [Unknown]
  - Blood disorder [Unknown]
  - Anaemia [Unknown]
  - Urinary tract infection [Unknown]
  - Haemorrhage [Unknown]
  - Spinal stenosis [Unknown]
  - Balance disorder [Unknown]
  - Myalgia [Unknown]
  - Drug interaction [Unknown]
